FAERS Safety Report 11149050 (Version 2)
Quarter: 2015Q2

REPORT INFORMATION
  Report Type: Report from Study
  Country: IT (occurrence: IT)
  Receive Date: 20150529
  Receipt Date: 20150612
  Transmission Date: 20150821
  Serious: Yes (Hospitalization)
  Sender: FDA-Public Use
  Company Number: IT-ABBVIE-15P-083-1395370-00

PATIENT
  Age: 68 Year
  Sex: Male
  Weight: 65 kg

DRUGS (15)
  1. SEEBRI [Concomitant]
     Active Substance: GLYCOPYRRONIUM
     Indication: BRONCHOSPASM
     Route: 048
     Dates: start: 20150504
  2. AERIUS [Concomitant]
     Active Substance: DESLORATADINE
     Indication: PRURITUS
     Route: 048
     Dates: start: 20150504
  3. LANSOPRAZOLE ACTAVIS [Concomitant]
     Active Substance: LANSOPRAZOLE
     Indication: PROPHYLAXIS
  4. LUVION [Concomitant]
     Active Substance: CANRENONE
     Indication: HEPATIC CIRRHOSIS
     Route: 048
     Dates: start: 20150504
  5. LANSOPRAZOLE ACTAVIS [Concomitant]
     Active Substance: LANSOPRAZOLE
     Indication: GASTRIC DISORDER
     Route: 048
     Dates: start: 20150528
  6. COPEGUS [Concomitant]
     Active Substance: RIBAVIRIN
     Indication: HEPATITIS C
     Route: 048
     Dates: start: 20150528
  7. FERRO-GRAD [Concomitant]
     Active Substance: FERROUS SULFATE\FERROUS SULFATE, DRIED
     Indication: ANAEMIA
     Route: 048
     Dates: start: 20150504
  8. ISOCOLAN [Concomitant]
     Active Substance: ELECTROLYTES NOS\POLYETHYLENE GLYCOL 4000
     Indication: CONSTIPATION
     Dosage: DAILY DOSE: 1 SACHET
     Route: 048
     Dates: start: 20150528
  9. ABT-450/RITONAVIR/ABT-267 [Suspect]
     Active Substance: OMBITASVIR\PARITAPREVIR\RITONAVIR
     Indication: HEPATITIS C
     Dosage: 12.5/75/50 MG TWICE PER DAY
     Route: 048
     Dates: start: 20150504
  10. ABT-333 [Suspect]
     Active Substance: DASABUVIR
     Indication: HEPATITIS C
     Route: 048
     Dates: start: 20150504
  11. DEURSIL [Concomitant]
     Active Substance: URSODIOL
     Indication: CHOLESTASIS
     Route: 048
     Dates: start: 20150504
  12. NORMIX [Concomitant]
     Active Substance: RIFAXIMIN
     Indication: HYPERAMMONAEMIA
     Route: 048
     Dates: start: 20150504
  13. PORTOLAC [Concomitant]
     Active Substance: LACTITOL
     Indication: CONSTIPATION
     Dosage: DAILY DOSE: 2 SACHET
     Route: 048
     Dates: start: 20150528
  14. FOLINA [Concomitant]
     Active Substance: FOLIC ACID
     Indication: ANAEMIA
     Dosage: DAILY DOSE: 2 UNIT
     Route: 048
     Dates: start: 20150504
  15. KANRENOL [Concomitant]
     Active Substance: CANRENOATE POTASSIUM
     Indication: HEPATIC CIRRHOSIS
     Route: 048
     Dates: start: 20150528

REACTIONS (1)
  - Hyperammonaemia [Recovering/Resolving]

NARRATIVE: CASE EVENT DATE: 20150519
